FAERS Safety Report 4268819-8 (Version None)
Quarter: 2004Q1

REPORT INFORMATION
  Report Type: 
  Country: None (occurrence: None)
  Receive Date: 20040109
  Receipt Date: 20031223
  Transmission Date: 20041129
  Serious: Yes (Hospitalization)
  Sender: FDA-Public Use
  Company Number: A-CH2003-04135

PATIENT
  Age: 32 Year
  Sex: Female
  Weight: 38 kg

DRUGS (9)
  1. TRACLEER [Suspect]
     Indication: PULMONARY HYPERTENSION
     Dosage: SEE IMAGE
     Route: 048
     Dates: start: 20030321, end: 20030926
  2. TRACLEER [Suspect]
     Indication: PULMONARY HYPERTENSION
     Dosage: SEE IMAGE
     Route: 048
     Dates: start: 20030927, end: 20031201
  3. DIURETICS [Concomitant]
  4. MARCUMAR [Concomitant]
  5. ILOPROST (ILOPROST) [Concomitant]
  6. SILDENAFIL (SILDENAFIL) [Concomitant]
  7. ALLOPURINOL [Concomitant]
  8. POTASSIUM (POTASSIUM) [Concomitant]
  9. INSULIN [Concomitant]

REACTIONS (4)
  - ALANINE AMINOTRANSFERASE INCREASED [None]
  - ASPARTATE AMINOTRANSFERASE INCREASED [None]
  - BLOOD ALKALINE PHOSPHATASE INCREASED [None]
  - BLOOD BILIRUBIN INCREASED [None]
